FAERS Safety Report 17145553 (Version 2)
Quarter: 2020Q1

REPORT INFORMATION
  Report Type: Spontaneous
  Country: US (occurrence: US)
  Receive Date: 20191212
  Receipt Date: 20200326
  Transmission Date: 20200409
  Serious: Yes (Other)
  Sender: FDA-Public Use
  Company Number: US-JNJFOC-20191214153

PATIENT
  Age: 54 Year
  Sex: Female
  Weight: 61.29 kg

DRUGS (2)
  1. REMICADE [Suspect]
     Active Substance: INFLIXIMAB
     Indication: COLITIS ULCERATIVE
     Route: 042
     Dates: start: 201308
  2. ASACOL [Concomitant]
     Active Substance: MESALAMINE
     Indication: COLITIS
     Dates: start: 200601, end: 201502

REACTIONS (4)
  - Colitis ulcerative [Unknown]
  - Off label use [Unknown]
  - Drug specific antibody present [Unknown]
  - Product use issue [Unknown]

NARRATIVE: CASE EVENT DATE: 201308
